FAERS Safety Report 23822331 (Version 2)
Quarter: 2024Q4

REPORT INFORMATION
  Report Type: Report from Study
  Country: US (occurrence: US)
  Receive Date: 20240506
  Receipt Date: 20241028
  Transmission Date: 20250115
  Serious: Yes (Congenital Anomaly, Other)
  Sender: GILEAD
  Company Number: US-GILEAD-2024-0671557

PATIENT
  Age: 0 Year
  Sex: Male
  Weight: 2.2 kg

DRUGS (1)
  1. BICTEGRAVIR\EMTRICITABINE\TENOFOVIR ALAFENAMIDE [Suspect]
     Active Substance: BICTEGRAVIR\EMTRICITABINE\TENOFOVIR ALAFENAMIDE
     Indication: Product used for unknown indication
     Dosage: 1 DOSAGE FORM, QD
     Route: 064

REACTIONS (5)
  - Glucose-6-phosphate dehydrogenase [Unknown]
  - Congenital adrenal gland hypoplasia [Unknown]
  - 11-beta-hydroxylase deficiency [Unknown]
  - Glycogen storage disease type II [Unknown]
  - Foetal exposure during pregnancy [Recovered/Resolved]

NARRATIVE: CASE EVENT DATE: 20231025
